FAERS Safety Report 8664583 (Version 2)
Quarter: 2012Q4

REPORT INFORMATION
  Report Type: 
  Country: DE (occurrence: DE)
  Receive Date: 20120713
  Receipt Date: 20121008
  Transmission Date: 20130627
  Serious: Yes (Life-Threatening)
  Sender: FDA-Public Use
  Company Number: DE-B.I. PHARMACEUTICALS,INC./RIDGEFIELD-2012-DE-01635DE

PATIENT
  Sex: Male
  Weight: 72 kg

DRUGS (2)
  1. PRADAXA [Suspect]
     Indication: ATRIAL FIBRILLATION
     Dosage: 300 mg
     Route: 048
     Dates: start: 20110926, end: 20111026
  2. PRADAXA [Suspect]
     Dosage: 220 mg
     Route: 048
     Dates: start: 20111026, end: 20111120

REACTIONS (1)
  - Prothrombin time prolonged [Unknown]
